FAERS Safety Report 7105429-9 (Version None)
Quarter: 2010Q4

REPORT INFORMATION
  Report Type: 
  Country: None (occurrence: None)
  Receive Date: 20101110
  Receipt Date: 20101025
  Transmission Date: 20110411
  Serious: Yes (Hospitalization)
  Sender: FDA-Public Use
  Company Number: JPI-P-012719

PATIENT
  Age: 68 Year
  Sex: Male

DRUGS (1)
  1. XYREM [Suspect]
     Indication: CATAPLEXY
     Dosage: 3 GM (1.5 GM, 2 IN 1 D), ORAL, 4.5 GM (2.25 GM, 2 IN 1 D), ORAL
     Route: 048
     Dates: start: 20081208

REACTIONS (7)
  - FALL [None]
  - FRACTURE [None]
  - HEAD INJURY [None]
  - MYOCARDIAL INFARCTION [None]
  - NECK INJURY [None]
  - PRURITUS [None]
  - RASH MACULO-PAPULAR [None]
